FAERS Safety Report 5916589-7 (Version None)
Quarter: 2008Q4

REPORT INFORMATION
  Report Type: 
  Country: None (occurrence: None)
  Receive Date: 20081013
  Receipt Date: 20080930
  Transmission Date: 20090506
  Serious: Yes (Hospitalization, Disabling)
  Sender: FDA-Public Use
  Company Number: US-MERCK-0805USA01253

PATIENT
  Age: 68 Year
  Sex: Female

DRUGS (3)
  1. FOSAMAX [Suspect]
     Indication: OSTEOPOROSIS
     Route: 048
     Dates: start: 20000101, end: 20050101
  2. FOSAMAX [Suspect]
     Route: 048
     Dates: end: 20060613
  3. [THERAPY UNSPECIFIED] [Concomitant]
     Indication: HYPERTENSION
     Route: 065
     Dates: start: 20000112, end: 20000501

REACTIONS (26)
  - ANXIETY [None]
  - BONE GRAFT [None]
  - CARDIAC DISORDER [None]
  - CARDIAC MURMUR [None]
  - CARDIAC PACEMAKER INSERTION [None]
  - DEPRESSION [None]
  - DEVICE RELATED INFECTION [None]
  - EAR PAIN [None]
  - EMOTIONAL DISTRESS [None]
  - GALLBLADDER DISORDER [None]
  - GALLBLADDER OPERATION [None]
  - HAND FRACTURE [None]
  - HEART RATE IRREGULAR [None]
  - HORMONE LEVEL ABNORMAL [None]
  - INSOMNIA [None]
  - IRRITABILITY [None]
  - LYMPH NODE PAIN [None]
  - MENTAL DISORDER [None]
  - MULTIPLE INJURIES [None]
  - NECROSIS [None]
  - ORAL TORUS [None]
  - OSTEONECROSIS [None]
  - PAIN [None]
  - PERIODONTAL DISEASE [None]
  - PERIODONTITIS [None]
  - POISONING [None]
